FAERS Safety Report 6271688-8 (Version None)
Quarter: 2009Q3

REPORT INFORMATION
  Report Type: 
  Country: None (occurrence: None)
  Receive Date: 20090717
  Receipt Date: 20090713
  Transmission Date: 20100115
  Serious: Yes (Life-Threatening, Hospitalization)
  Sender: FDA-Public Use
  Company Number: JP-BAYER-200912396BYL

PATIENT
  Age: 80 Year
  Sex: Female

DRUGS (7)
  1. NEXAVAR [Suspect]
     Indication: HEPATIC NEOPLASM MALIGNANT
     Dosage: TOTAL DAILY DOSE: 800 MG  UNIT DOSE: 200 MG
     Route: 048
     Dates: start: 20090706, end: 20090710
  2. MAGLAX [Concomitant]
     Dosage: UNIT DOSE: 330 MG
     Route: 048
  3. PARIET [Concomitant]
     Dosage: UNIT DOSE: 10 MG
     Route: 048
  4. AMARYL [Concomitant]
     Dosage: UNIT DOSE: 1 MG
     Route: 048
  5. NORVASC [Concomitant]
     Dosage: UNIT DOSE: 5 MG
     Route: 048
  6. ALDACTONE [Concomitant]
     Dosage: UNIT DOSE: 25 MG
     Route: 048
  7. LORFENAMIN [Concomitant]
     Dosage: UNIT DOSE: 60 MG
     Route: 048

REACTIONS (2)
  - ACUTE RESPIRATORY DISTRESS SYNDROME [None]
  - LUNG DISORDER [None]
